FAERS Safety Report 6124082-4 (Version None)
Quarter: 2009Q1

REPORT INFORMATION
  Report Type: 
  Country: None (occurrence: None)
  Receive Date: 20090316
  Receipt Date: 20081124
  Transmission Date: 20090719
  Serious: No
  Sender: FDA-Public Use
  Company Number: DSA_32747_2008

PATIENT
  Age: 52 Year
  Sex: Male

DRUGS (6)
  1. XENAZINE [Suspect]
     Indication: DRUG USE FOR UNKNOWN INDICATION
     Dosage: (25 MG TID)
     Dates: start: 20030101, end: 20081121
  2. PAXIL [Concomitant]
  3. XANAX [Concomitant]
  4. TRAZODONE HCL [Concomitant]
  5. RISPERDAL [Concomitant]
  6. SEROQUEL [Concomitant]

REACTIONS (4)
  - AGITATION [None]
  - INSOMNIA [None]
  - SPEECH DISORDER [None]
  - WITHDRAWAL SYNDROME [None]
